FAERS Safety Report 16898806 (Version 2)
Quarter: 2019Q4

REPORT INFORMATION
  Report Type: Spontaneous
  Country: US (occurrence: US)
  Receive Date: 20191009
  Receipt Date: 20191122
  Transmission Date: 20200122
  Serious: No
  Sender: FDA-Public Use
  Company Number: US-PFIZER INC-2019431470

PATIENT
  Age: 61 Year
  Sex: Female
  Weight: 75 kg

DRUGS (12)
  1. CALTRATE + D [CALCIUM;ERGOCALCIFEROL] [Concomitant]
     Dosage: UNK
  2. BUSPIRONE [Concomitant]
     Active Substance: BUSPIRONE HYDROCHLORIDE
     Dosage: 10 MG, 2X/DAY (20MG/DAY (10 MG TWICE DAILY))
  3. METFORMIN [Concomitant]
     Active Substance: METFORMIN HYDROCHLORIDE
     Dosage: 2000 MG, 1X/DAY (2,000MG/DAY (4-500 MG PILLS))
  4. LEVOTHYROXINE [LEVOTHYROXINE SODIUM] [Concomitant]
     Active Substance: LEVOTHYROXINE SODIUM
     Dosage: 88 UG, 1X/DAY (88 MCG/DAY)
  5. MACUHEALTH WITH LMZ3 [Concomitant]
     Dosage: UNK
  6. XELJANZ [Suspect]
     Active Substance: TOFACITINIB CITRATE
     Dosage: 5 MG, 1X/DAY
  7. LOSARTAN. [Concomitant]
     Active Substance: LOSARTAN
     Dosage: 50 MG, 1X/DAY (50 MG/DAY)
  8. IRON [FERROUS SULFATE] [Concomitant]
     Dosage: 45 MG, 1X/DAY ((45 MG/DAY)- SLOW FE)
  9. METOPROLOL. [Concomitant]
     Active Substance: METOPROLOL
     Dosage: 25 MG, 2X/DAY (50 MG/DAY (25 MG TWICE DAILY))
  10. PREDNISONE. [Concomitant]
     Active Substance: PREDNISONE
     Dosage: 9 MG, UNK (9 MG/DAY (1 TO 5 MG ONCE DAILY PLUS 5 MG ONCE DAILY))
  11. XELJANZ [Suspect]
     Active Substance: TOFACITINIB CITRATE
     Indication: RHEUMATOID ARTHRITIS
     Dosage: 5 MG, 2X/DAY
     Route: 048
  12. CELECOXIB. [Concomitant]
     Active Substance: CELECOXIB
     Dosage: 200 MG, 2X/DAY (200 MG TWICE DAILY)

REACTIONS (3)
  - Abdominal pain upper [Recovered/Resolved]
  - Diarrhoea [Recovered/Resolved]
  - Back disorder [Unknown]

NARRATIVE: CASE EVENT DATE: 2019
